FAERS Safety Report 8188372-6 (Version None)
Quarter: 2012Q1

REPORT INFORMATION
  Report Type: 
  Country: None (occurrence: None)
  Receive Date: 20120306
  Receipt Date: 20120223
  Transmission Date: 20120608
  Serious: Yes (Hospitalization, Other)
  Sender: FDA-Public Use
  Company Number: PHHY2011US29084

PATIENT
  Sex: Female

DRUGS (18)
  1. DIOVAN HCT [Suspect]
     Dosage: 320/25 MG,1 TABLET DAILY
     Route: 048
  2. LEVOTHYROXINE SODIUM [Concomitant]
     Dosage: 100 MG, UNK
  3. NASONEX [Concomitant]
  4. ASPIRIN [Concomitant]
  5. DIOVAN HCT [Suspect]
     Dosage: 1 DF, 320/25  MG DAILY
     Route: 048
     Dates: start: 20110316
  6. IBUPROFEN (ADVIL) [Concomitant]
     Dosage: 2 PER DAY
  7. ADVAIR DISKUS 100/50 [Concomitant]
     Dosage: UNK
  8. NOVOLOG MIX 70/30 [Concomitant]
  9. METOPROLOL SUCCINATE [Concomitant]
     Dosage: 25 MG, UNK
  10. PRAVASTATIN [Concomitant]
     Dosage: 40 MG, UNK
  11. MILK OF MAGNESIA TAB [Concomitant]
  12. CHLORDIAZEP [Concomitant]
     Dosage: 10 MG, UNK
  13. METOPROLOL TARTRATE [Concomitant]
     Dosage: 25 MG, UNK
  14. LORATADINE [Concomitant]
     Dosage: 10 MG, QD
  15. OMEPRAZOLE MAGNESIUM [Concomitant]
     Dosage: 20 MG, UNK
  16. AMLODIPINE [Concomitant]
     Dosage: 5 MG, UNK
  17. PLAVIX [Concomitant]
     Dosage: 75 MG, UNK
  18. NOVOLOG [Concomitant]
     Dosage: 70/30

REACTIONS (4)
  - CARDIAC FAILURE CONGESTIVE [None]
  - APHASIA [None]
  - DYSPHEMIA [None]
  - CEREBROVASCULAR ACCIDENT [None]
